FAERS Safety Report 5798248-7 (Version None)
Quarter: 2008Q3

REPORT INFORMATION
  Report Type: 
  Country: None (occurrence: None)
  Receive Date: 20080702
  Receipt Date: 20080623
  Transmission Date: 20090109
  Serious: Yes (Other)
  Sender: FDA-Public Use
  Company Number: US-JNJFOC-20080605935

PATIENT
  Sex: Female
  Weight: 63.5 kg

DRUGS (3)
  1. DURAGESIC-100 [Suspect]
     Indication: PAIN
     Route: 062
  2. LYRICA [Concomitant]
     Indication: CONVULSION
     Route: 048
  3. NEXIUM [Concomitant]
     Indication: GASTROOESOPHAGEAL REFLUX DISEASE
     Route: 048

REACTIONS (3)
  - APPLICATION SITE ERYTHEMA [None]
  - APPLICATION SITE PRURITUS [None]
  - ARTHRITIS [None]
